APPROVED DRUG PRODUCT: BIAXIN XL
Active Ingredient: CLARITHROMYCIN
Strength: 500MG **Federal Register determination that product was not discontinued or withdrawn for safety or effectiveness reasons**
Dosage Form/Route: TABLET, EXTENDED RELEASE;ORAL
Application: N050775 | Product #001
Applicant: ABBVIE INC
Approved: Mar 3, 2000 | RLD: Yes | RS: No | Type: DISCN